FAERS Safety Report 6223209-3 (Version None)
Quarter: 2009Q2

REPORT INFORMATION
  Report Type: 
  Country: None (occurrence: None)
  Receive Date: 20090611
  Receipt Date: 20090603
  Transmission Date: 20091009
  Serious: Yes (Other)
  Sender: FDA-Public Use
  Company Number: US-ABBOTT-09P-163-0577540-00

PATIENT
  Sex: Female
  Weight: 64.468 kg

DRUGS (3)
  1. SYNTHROID [Suspect]
     Indication: HYPOTHYROIDISM
     Dosage: AT BEDTIME
     Route: 048
  2. PREMARIN [Concomitant]
     Indication: MENOPAUSE
     Route: 048
  3. PROVERA [Concomitant]
     Indication: DRUG USE FOR UNKNOWN INDICATION
     Dosage: FOR 10 TEN DAYS EVERY OTHER MONTH
     Route: 048

REACTIONS (4)
  - BREAST CANCER IN SITU [None]
  - INSOMNIA [None]
  - NIGHTMARE [None]
  - PHYSICAL BREAST EXAMINATION ABNORMAL [None]
